FAERS Safety Report 23148975 (Version 1)
Quarter: 2023Q4

REPORT INFORMATION
  Report Type: Spontaneous
  Country: BR (occurrence: BR)
  Receive Date: 20231106
  Receipt Date: 20231106
  Transmission Date: 20240110
  Serious: Yes (Hospitalization)
  Sender: FDA-Public Use
  Company Number: BR-MYLANLABS-2023M1117268

PATIENT
  Age: 23 Year
  Sex: Male

DRUGS (3)
  1. CLOZAPINE [Suspect]
     Active Substance: CLOZAPINE
     Indication: Schizophrenia
     Dosage: 500 MILLIGRAM, QD
     Route: 065
  2. CLOZAPINE [Suspect]
     Active Substance: CLOZAPINE
     Dosage: CLOZAPINE WAS RESTARTED
     Route: 065
  3. CLOMIPRAMINE [Concomitant]
     Active Substance: CLOMIPRAMINE
     Indication: Obsessive-compulsive symptom
     Dosage: 75 MILLIGRAM
     Route: 065

REACTIONS (4)
  - Neutropenia [Recovered/Resolved]
  - Withdrawal syndrome [Recovering/Resolving]
  - Schizophrenia [Recovering/Resolving]
  - Condition aggravated [Recovering/Resolving]
